FAERS Safety Report 7422246-0 (Version None)
Quarter: 2011Q2

REPORT INFORMATION
  Report Type: 
  Country: None (occurrence: None)
  Receive Date: 20110419
  Receipt Date: 20110407
  Transmission Date: 20111010
  Serious: Yes (Hospitalization)
  Sender: FDA-Public Use
  Company Number: US-AMGEN-USACT2011018707

PATIENT
  Age: 63 Year
  Sex: Male

DRUGS (3)
  1. OXALIPLATIN [Concomitant]
     Indication: OESOPHAGEAL CARCINOMA
     Dosage: UNK
     Dates: start: 20110216, end: 20110323
  2. PANITUMUMAB [Suspect]
     Indication: OESOPHAGEAL CARCINOMA
     Dosage: 3.6 MG/KG, QWK
     Route: 042
     Dates: start: 20110216, end: 20110302
  3. XELODA [Concomitant]
     Indication: OESOPHAGEAL CARCINOMA
     Dosage: UNK
     Dates: start: 20110216, end: 20110325

REACTIONS (4)
  - PAIN [None]
  - VOMITING [None]
  - OEDEMA PERIPHERAL [None]
  - NAUSEA [None]
